FAERS Safety Report 22929461 (Version 2)
Quarter: 2023Q4

REPORT INFORMATION
  Report Type: Spontaneous
  Country: FR (occurrence: FR)
  Receive Date: 20230911
  Receipt Date: 20231021
  Transmission Date: 20240109
  Serious: Yes (Hospitalization)
  Sender: FDA-Public Use
  Company Number: None

PATIENT
  Age: 87 Year
  Sex: Male
  Weight: 80.8 kg

DRUGS (2)
  1. AMOXICILLIN [Interacting]
     Active Substance: AMOXICILLIN
     Indication: Erysipelas
     Dates: start: 202307, end: 202307
  2. METHOTREXATE [Interacting]
     Active Substance: METHOTREXATE
     Indication: Polymyalgia rheumatica
     Dates: start: 20230123, end: 20230724

REACTIONS (2)
  - Pancytopenia [Recovered/Resolved]
  - Drug interaction [Recovered/Resolved]

NARRATIVE: CASE EVENT DATE: 20230701
